FAERS Safety Report 19013925 (Version 1)
Quarter: 2021Q1

REPORT INFORMATION
  Report Type: Spontaneous
  Country: US (occurrence: US)
  Receive Date: 20210316
  Receipt Date: 20210316
  Transmission Date: 20210420
  Serious: Yes (Other)
  Sender: FDA-Public Use
  Company Number: US-HIKMA PHARMACEUTICALS USA INC.-US-H14001-21-01050

PATIENT
  Age: 39 Year
  Sex: Male

DRUGS (5)
  1. IMATINIB. [Suspect]
     Active Substance: IMATINIB MESYLATE
     Indication: CHRONIC MYELOID LEUKAEMIA
     Dosage: 400 MG, DAY 9?31
     Route: 065
  2. CYTARABINE. [Suspect]
     Active Substance: CYTARABINE
     Indication: CHRONIC MYELOID LEUKAEMIA
     Dosage: 100 MG/M2; FORM DAY 1 TO DAY 7
  3. DASATINIB. [Suspect]
     Active Substance: DASATINIB
     Dosage: 140 MG; DAY 9?31; INDUCTION CHEMOTHERAPY 7+3 PROTOCOL
     Route: 065
  4. DAUNORUBICIN [Suspect]
     Active Substance: DAUNORUBICIN
     Indication: CHRONIC MYELOID LEUKAEMIA
     Dosage: 90 MG/M2; ON DAYS 1, 2 AND 3
     Route: 042
  5. DASATINIB. [Suspect]
     Active Substance: DASATINIB
     Indication: CHRONIC MYELOID LEUKAEMIA
     Route: 065

REACTIONS (5)
  - Pulmonary embolism [Unknown]
  - Pleural effusion [Unknown]
  - Gastrointestinal haemorrhage [Unknown]
  - Abscess [Unknown]
  - Splenic abscess [Unknown]
